FAERS Safety Report 4388509-0 (Version None)
Quarter: 2004Q2

REPORT INFORMATION
  Report Type: 
  Country: None (occurrence: None)
  Receive Date: 20040625
  Receipt Date: 20040618
  Transmission Date: 20050107
  Serious: Yes (Death)
  Sender: FDA-Public Use
  Company Number: US-JNFOC-20040503261

PATIENT
  Age: 79 Year
  Sex: Female

DRUGS (11)
  1. RISPERDAL [Suspect]
     Indication: MENTAL DISORDER
     Dosage: 0.5 MG, 2 IN 1 DAY, ORAL
     Route: 048
     Dates: end: 20040430
  2. PRILOSEC [Concomitant]
  3. ASPIRIN [Concomitant]
  4. ACTONEL (RISENDRONATE SODIUM) [Concomitant]
  5. LOPRESSOR [Concomitant]
  6. PAXIL [Concomitant]
  7. DYAZIDE [Concomitant]
  8. DEPAKOTE [Concomitant]
  9. BEXTRA [Concomitant]
  10. NORVASC [Concomitant]
  11. XANAX [Concomitant]

REACTIONS (1)
  - LUNG CANCER METASTATIC [None]
